FAERS Safety Report 4498885-6 (Version None)
Quarter: 2004Q4

REPORT INFORMATION
  Report Type: 
  Country: None (occurrence: None)
  Receive Date: 20041111
  Receipt Date: 20040116
  Transmission Date: 20050328
  Serious: Yes (Death, Other)
  Sender: FDA-Public Use
  Company Number: US-AMGEN-KDL064018

PATIENT
  Sex: Male
  Weight: 92.6 kg

DRUGS (9)
  1. ARANESP [Suspect]
     Indication: RENAL FAILURE CHRONIC
     Dates: start: 20030609, end: 20030909
  2. EPOGEN [Suspect]
     Indication: RENAL FAILURE CHRONIC
     Route: 058
     Dates: start: 20030909, end: 20031217
  3. BLOOD CELLS, PACKED HUMAN [Concomitant]
     Dates: start: 20030601
  4. PREDNISONE [Concomitant]
     Dates: start: 19880101
  5. CYCLOSPORINE [Concomitant]
     Dates: start: 19880101
  6. COUMADIN [Concomitant]
  7. LASIX [Concomitant]
  8. METOPROLOL SUCCINATE [Concomitant]
  9. LEVOTHYROXINE SODIUM [Concomitant]

REACTIONS (6)
  - BONE MARROW DEPRESSION [None]
  - CARDIAC FAILURE CONGESTIVE [None]
  - CONDITION AGGRAVATED [None]
  - DRUG INEFFECTIVE [None]
  - HAEMOGLOBIN DECREASED [None]
  - THERAPEUTIC RESPONSE DECREASED [None]
